FAERS Safety Report 7414415-0 (Version None)
Quarter: 2011Q2

REPORT INFORMATION
  Report Type: 
  Country: None (occurrence: None)
  Receive Date: 20110414
  Receipt Date: 20110322
  Transmission Date: 20111010
  Serious: Yes (Hospitalization, Other)
  Sender: FDA-Public Use
  Company Number: US-ASTELLAS-2011US001167

PATIENT
  Sex: Female

DRUGS (26)
  1. CALCIUM +D [Concomitant]
     Indication: PRODUCT USED FOR UNKNOWN INDICATION
     Dosage: 600-200 MG, TWICE DAILY
     Route: 048
  2. HYDROXYZINE HCL [Concomitant]
     Indication: PRODUCT USED FOR UNKNOWN INDICATION
     Dosage: 25 MG TABLET EVERY 6 HOURS PRN
     Route: 048
  3. ZOCOR [Concomitant]
     Indication: PRODUCT USED FOR UNKNOWN INDICATION
     Dosage: 40 MG, UID/QD
     Route: 048
  4. ALLOPURINOL [Concomitant]
     Indication: PRODUCT USED FOR UNKNOWN INDICATION
     Dosage: 100 MG, QID
     Route: 048
  5. HUMULIN N [Concomitant]
     Indication: PRODUCT USED FOR UNKNOWN INDICATION
     Dosage: 21 UNITS EVERY MORNING, 11 UNITS EVERY EVENING
     Route: 065
  6. K-DUR [Concomitant]
     Indication: PRODUCT USED FOR UNKNOWN INDICATION
     Dosage: 40 MEQ, BID
     Route: 048
  7. PROCRIT [Concomitant]
     Indication: PRODUCT USED FOR UNKNOWN INDICATION
     Dosage: 40000 U, UID/QD
     Route: 058
  8. DIFLUCAN [Concomitant]
     Indication: PRODUCT USED FOR UNKNOWN INDICATION
     Dosage: 100 MG, PRN
     Route: 048
  9. HYDRALAZINE HCL [Concomitant]
     Indication: PRODUCT USED FOR UNKNOWN INDICATION
     Dosage: 100 MG, TID
     Route: 048
  10. NEXIUM [Concomitant]
     Indication: PRODUCT USED FOR UNKNOWN INDICATION
     Dosage: 40 MG, UID/QD
     Route: 048
  11. ZAROXOLYN [Concomitant]
     Indication: PRODUCT USED FOR UNKNOWN INDICATION
     Dosage: 5 MG, UID/QD
     Route: 048
  12. PROGRAF [Suspect]
     Indication: RENAL TRANSPLANT
     Dosage: 2 MG IN MORNING, 1 MG IN EVENING
     Route: 048
     Dates: start: 20080529, end: 20101201
  13. PREDNISONE [Concomitant]
     Indication: PRODUCT USED FOR UNKNOWN INDICATION
     Dosage: 5 MG, UID/QD
     Route: 048
  14. CLONIDINE HCL [Concomitant]
     Indication: PRODUCT USED FOR UNKNOWN INDICATION
     Dosage: 0.6 MG, UID/QD
     Route: 065
  15. FOLIC ACID [Concomitant]
     Indication: PRODUCT USED FOR UNKNOWN INDICATION
     Dosage: 1 MG, UID/QD
     Route: 048
  16. VENOFER [Concomitant]
     Indication: PRODUCT USED FOR UNKNOWN INDICATION
     Dosage: 20 MG/ML, UNKNOWN/D
     Route: 065
     Dates: start: 20101203
  17. HUMULIN R [Concomitant]
     Indication: PRODUCT USED FOR UNKNOWN INDICATION
     Dosage: SLIDING SCALE
     Route: 065
  18. IRON [Concomitant]
     Indication: PRODUCT USED FOR UNKNOWN INDICATION
     Dosage: 325 MG, BID
     Route: 048
  19. LOPRESSOR [Concomitant]
     Indication: PRODUCT USED FOR UNKNOWN INDICATION
     Dosage: 50 MG, UID/QD
     Route: 048
  20. LASIX [Concomitant]
     Indication: PRODUCT USED FOR UNKNOWN INDICATION
     Dosage: 80 MG, BID
     Route: 048
  21. LORTAB [Concomitant]
     Indication: PAIN
     Dosage: 1 10-500 MG TABLET EVERY 6-8 HOURS AS NEEDED
     Route: 048
  22. ZOLOFT [Concomitant]
     Indication: PRODUCT USED FOR UNKNOWN INDICATION
     Dosage: 50 MG, UID/QD
     Route: 048
  23. FLEXERIL [Concomitant]
     Indication: PRODUCT USED FOR UNKNOWN INDICATION
     Dosage: 5 MG TABLET, 1 EVERY 8-12 HOURS PRN
     Route: 048
  24. PROMETHAZINE HCL [Concomitant]
     Indication: NAUSEA
     Dosage: 25 MG TABLET EVERY 6-8 HOURS PRN
     Route: 048
  25. VITAMIN D [Concomitant]
     Indication: PRODUCT USED FOR UNKNOWN INDICATION
     Dosage: 1000 U, UID/QD
     Route: 048
  26. ZOLPIDEM TARTRATE [Concomitant]
     Indication: PRODUCT USED FOR UNKNOWN INDICATION
     Dosage: 10 MG, QHS
     Route: 048

REACTIONS (23)
  - DEPRESSION [None]
  - DRUG INEFFECTIVE [None]
  - DIABETES MELLITUS [None]
  - LEUKOPENIA [None]
  - COMPLICATIONS OF TRANSPLANTED KIDNEY [None]
  - KIDNEY TRANSPLANT REJECTION [None]
  - PACKED RED BLOOD CELL TRANSFUSION [None]
  - NAUSEA [None]
  - TRANSPLANT FAILURE [None]
  - HAEMODIALYSIS [None]
  - VOMITING [None]
  - SINUSITIS [None]
  - RENAL FAILURE ACUTE [None]
  - FLUID RETENTION [None]
  - EPISTAXIS [None]
  - PANCREATITIS [None]
  - DYSPNOEA [None]
  - AZOTAEMIA [None]
  - MENINGITIS [None]
  - VIRAL INFECTION [None]
  - MENTAL STATUS CHANGES [None]
  - TOXICITY TO VARIOUS AGENTS [None]
  - FLUID OVERLOAD [None]
